FAERS Safety Report 12964982 (Version 1)
Quarter: 2016Q4

REPORT INFORMATION
  Report Type: Spontaneous
  Country: US (occurrence: US)
  Receive Date: 20161122
  Receipt Date: 20161122
  Transmission Date: 20170207
  Serious: No
  Sender: FDA-Public Use
  Company Number: US-ALLERGAN-1669814US

PATIENT
  Age: 43 Year
  Sex: Female

DRUGS (3)
  1. ALLESTRA [Concomitant]
     Active Substance: ETHINYL ESTRADIOL\GESTODENE
     Indication: PRODUCT USED FOR UNKNOWN INDICATION
     Dosage: UNK
  2. KYBELLA [Suspect]
     Active Substance: DEOXYCHOLIC ACID
     Indication: FAT TISSUE INCREASED
     Dosage: 4 ML, SINGLE
     Route: 058
     Dates: start: 20160923, end: 20160923
  3. CYMBALTA [Concomitant]
     Active Substance: DULOXETINE HYDROCHLORIDE
     Indication: PRODUCT USED FOR UNKNOWN INDICATION
     Dosage: UNK

REACTIONS (2)
  - Pain in jaw [Recovered/Resolved]
  - Swelling [Recovered/Resolved]

NARRATIVE: CASE EVENT DATE: 20160923
